FAERS Safety Report 6564795-3 (Version None)
Quarter: 2010Q1

REPORT INFORMATION
  Report Type: 
  Country: None (occurrence: None)
  Receive Date: 20100201
  Receipt Date: 20100120
  Transmission Date: 20100710
  Serious: Yes (Hospitalization)
  Sender: FDA-Public Use
  Company Number: DE-PFIZER INC-2006040031

PATIENT
  Age: 57 Year
  Sex: Male
  Weight: 64 kg

DRUGS (11)
  1. SUNITINIB MALATE [Suspect]
     Indication: METASTATIC RENAL CELL CARCINOMA
     Dosage: 50 MG, 1X/DAY
     Route: 048
     Dates: start: 20060117, end: 20060320
  2. LISINOPRIL [Concomitant]
     Dosage: 1 TAB
     Route: 048
     Dates: start: 20060320
  3. BAYOTENSIN [Concomitant]
     Dosage: 2 TAB,DAILY
     Route: 048
     Dates: start: 20060320
  4. FORTECORTIN [Concomitant]
     Dosage: 3 TABS,DAILY
     Route: 048
     Dates: start: 20060320
  5. PANTOPRAZOLE [Concomitant]
     Dosage: 1 TAB,DAILY
     Route: 048
     Dates: start: 20060320
  6. CLEXANE [Concomitant]
     Route: 058
     Dates: start: 20070321
  7. TRAMADOL [Concomitant]
     Dosage: 400 MG, UNK
     Route: 048
     Dates: start: 20040812
  8. VITAMIN B COMPLEX CAP [Concomitant]
     Route: 048
     Dates: start: 20060111
  9. DRONABINOL [Concomitant]
     Route: 048
     Dates: start: 20051111
  10. BEPANTHEN ^ROCHE^ [Concomitant]
     Route: 061
     Dates: start: 20060818
  11. MAALOXAN [Concomitant]
     Route: 048
     Dates: start: 20060131

REACTIONS (3)
  - HYPERTENSION [None]
  - SOMNOLENCE [None]
  - VOMITING [None]
